FAERS Safety Report 15319771 (Version 2)
Quarter: 2018Q3

REPORT INFORMATION
  Report Type: Spontaneous
  Country: US (occurrence: US)
  Receive Date: 20180827
  Receipt Date: 20180829
  Transmission Date: 20181010
  Serious: Yes (Other)
  Sender: FDA-Public Use
  Company Number: US-CONCORDIA PHARMACEUTICALS INC.-GSH201805-001560

PATIENT
  Sex: Female

DRUGS (25)
  1. METHOTREXATE SODIUM. [Suspect]
     Active Substance: METHOTREXATE SODIUM
     Indication: CREST SYNDROME
     Route: 065
     Dates: start: 2013, end: 201711
  2. DICLOFENAC NA [Concomitant]
     Active Substance: DICLOFENAC SODIUM
     Dates: end: 2017
  3. HYDROXYCHLOROQUINE [Concomitant]
     Active Substance: HYDROXYCHLOROQUINE
     Dates: end: 201801
  4. QVAR [Concomitant]
     Active Substance: BECLOMETHASONE DIPROPIONATE
     Dosage: 80 UG,DAILY (40 UG 2PUFF DAILY)
  5. METHOTREXATE SODIUM. [Suspect]
     Active Substance: METHOTREXATE SODIUM
     Route: 065
     Dates: end: 201801
  6. ENBREL [Suspect]
     Active Substance: ETANERCEPT
     Indication: RHEUMATOID ARTHRITIS
     Route: 065
  7. LOPRESSOR [Concomitant]
     Active Substance: METOPROLOL TARTRATE
  8. PREDNISONE. [Concomitant]
     Active Substance: PREDNISONE
     Dates: start: 2013
  9. PLAQUENIL [Suspect]
     Active Substance: HYDROXYCHLOROQUINE SULFATE
     Indication: RHEUMATOID ARTHRITIS
     Route: 065
     Dates: start: 2013, end: 201801
  10. METHOTREXATE SODIUM. [Suspect]
     Active Substance: METHOTREXATE SODIUM
     Route: 065
  11. LOPRESSOR [Concomitant]
     Active Substance: METOPROLOL TARTRATE
  12. EDARBI [Concomitant]
     Active Substance: AZILSARTAN KAMEDOXOMIL
  13. THYROXIN [Concomitant]
     Active Substance: LEVOTHYROXINE
     Dates: end: 2017
  14. HYDROXYCHLOROQUINE [Concomitant]
     Active Substance: HYDROXYCHLOROQUINE
  15. LUTEIN [Concomitant]
     Active Substance: LUTEIN
  16. METHOTREXATE SODIUM. [Suspect]
     Active Substance: METHOTREXATE SODIUM
     Indication: RHEUMATOID ARTHRITIS
     Route: 065
     Dates: start: 2013
  17. METHOTREXATE SODIUM. [Suspect]
     Active Substance: METHOTREXATE SODIUM
     Route: 065
  18. LOPRESSOR [Concomitant]
     Active Substance: METOPROLOL TARTRATE
  19. PANTOPRAZOL [Concomitant]
     Active Substance: PANTOPRAZOLE SODIUM
     Dates: end: 2017
  20. ABATACEPT [Suspect]
     Active Substance: ABATACEPT
     Indication: PRODUCT USED FOR UNKNOWN INDICATION
     Route: 065
  21. SILDENAFIL. [Concomitant]
     Active Substance: SILDENAFIL
  22. PLAQUENIL [Suspect]
     Active Substance: HYDROXYCHLOROQUINE SULFATE
     Indication: CREST SYNDROME
     Route: 065
  23. PREDNISONE. [Suspect]
     Active Substance: PREDNISONE
     Indication: CREST SYNDROME
     Dosage: 7?DAYS
     Route: 048
  24. VALACYCLOVIR [Concomitant]
     Active Substance: VALACYCLOVIR HYDROCHLORIDE
  25. RESTASIS [Concomitant]
     Active Substance: CYCLOSPORINE
     Indication: DRY EYE

REACTIONS (10)
  - Drug ineffective [Unknown]
  - Arthralgia [Unknown]
  - Hair colour changes [Unknown]
  - Nausea [Unknown]
  - Gastrointestinal disorder [Unknown]
  - Fatigue [Unknown]
  - Thyroid disorder [Unknown]
  - Rheumatoid arthritis [Recovering/Resolving]
  - Alopecia [Unknown]
  - Drug effect incomplete [Unknown]
